FAERS Safety Report 10944680 (Version 1)
Quarter: 2015Q1

REPORT INFORMATION
  Report Type: Spontaneous
  Country: US (occurrence: US)
  Receive Date: 20150323
  Receipt Date: 20150323
  Transmission Date: 20150721
  Serious: No
  Sender: FDA-Public Use
  Company Number: US-PFIZER INC-2015093938

PATIENT
  Age: 59 Year
  Sex: Male
  Weight: 89.34 kg

DRUGS (1)
  1. SUTENT [Suspect]
     Active Substance: SUNITINIB MALATE
     Indication: METASTATIC RENAL CELL CARCINOMA
     Dosage: 50 MG, 1X/DAY
     Route: 048
     Dates: start: 201501

REACTIONS (3)
  - Diarrhoea [Unknown]
  - Medication residue present [Unknown]
  - Product solubility abnormal [Unknown]
